FAERS Safety Report 6265411-0 (Version None)
Quarter: 2009Q3

REPORT INFORMATION
  Report Type: 
  Country: None (occurrence: None)
  Receive Date: 20090713
  Receipt Date: 20090702
  Transmission Date: 20100115
  Serious: Yes (Disabling)
  Sender: FDA-Public Use
  Company Number: PT-BRISTOL-MYERS SQUIBB COMPANY-14694517

PATIENT
  Age: 62 Year
  Sex: Female
  Weight: 58 kg

DRUGS (3)
  1. RISIDON [Suspect]
     Indication: DIABETES MELLITUS
     Dosage: FORMULATION: 1000MG, FILM COATED TABLET TOOK 1 TABLET IN TOTAL
     Route: 048
     Dates: start: 20090601, end: 20090601
  2. FENOFIBRATE [Concomitant]
     Route: 048
  3. CLOPIDOGREL BISULFATE [Concomitant]
     Dosage: CLOPIDOGREL HYDROGEN SULFATE
     Route: 048

REACTIONS (6)
  - ABDOMINAL PAIN [None]
  - DEFAECATION URGENCY [None]
  - HYPERHIDROSIS [None]
  - HYPOKINESIA [None]
  - MEDICATION ERROR [None]
  - VOMITING [None]
